FAERS Safety Report 8572359-5 (Version None)
Quarter: 2012Q2

REPORT INFORMATION
  Report Type: 
  Country: None (occurrence: None)
  Receive Date: 20120419
  Receipt Date: 20120419
  Transmission Date: 20120825
  Serious: Yes (Other)
  Sender: FDA-Public Use
  Company Number: ALL1-2011-03802

PATIENT
  Age: 29 Year
  Sex: Female

DRUGS (1)
  1. LIALDA [Suspect]
     Indication: COLITIS
     Dosage: UNK, UNKNOWN, ORAL
     Route: 048
     Dates: start: 20110101, end: 20110101

REACTIONS (1)
  - PERICARDITIS [None]
